FAERS Safety Report 18276321 (Version 1)
Quarter: 2020Q3

REPORT INFORMATION
  Report Type: Spontaneous
  Country: US (occurrence: US)
  Receive Date: 20200917
  Receipt Date: 20200917
  Transmission Date: 20201103
  Serious: No
  Sender: FDA-Public Use
  Company Number: US-AUROBINDO-AUR-APL-2020-015983

PATIENT

DRUGS (1)
  1. DEXTROAMPHETAMINE SULFATE TABLETS, USP 10 MG [Suspect]
     Active Substance: DEXTROAMPHETAMINE SULFATE
     Indication: ATTENTION DEFICIT HYPERACTIVITY DISORDER
     Dosage: UNK
     Route: 065

REACTIONS (10)
  - Anxiety [Recovered/Resolved]
  - Drug ineffective [Unknown]
  - Lethargy [Recovered/Resolved]
  - Seborrhoea [Recovered/Resolved]
  - Rosacea [Recovered/Resolved]
  - Headache [Recovered/Resolved]
  - Fatigue [Recovered/Resolved]
  - Skin irritation [Recovered/Resolved]
  - Product substitution issue [Unknown]
  - Pustule [Recovered/Resolved]
